FAERS Safety Report 7222006-X (Version None)
Quarter: 2011Q1

REPORT INFORMATION
  Report Type: 
  Country: None (occurrence: None)
  Receive Date: 20110104
  Receipt Date: 20101220
  Transmission Date: 20110831
  Serious: Yes (Other)
  Sender: FDA-Public Use
  Company Number: AUR-APL-2010-02989

PATIENT
  Age: 43 Year
  Sex: Female

DRUGS (3)
  1. TOPIRAMATE [Suspect]
     Indication: MIGRAINE
     Dosage: 25MG-DAILY-ORAL
     Route: 048
  2. AMITRIPTYLINE HCL [Concomitant]
  3. PROPRANOLOL [Concomitant]

REACTIONS (5)
  - HEADACHE [None]
  - PHOTOPSIA [None]
  - MYOPIA [None]
  - PHOTOPHOBIA [None]
  - RETINAL DETACHMENT [None]
